FAERS Safety Report 8403445 (Version 3)
Quarter: 2013Q4

REPORT INFORMATION
  Report Type: Spontaneous
  Country: US (occurrence: US)
  Receive Date: 20120213
  Receipt Date: 20131001
  Transmission Date: 20140711
  Serious: Yes (Hospitalization)
  Sender: FDA-Public Use
  Company Number: US-BAYER-2012-012877

PATIENT
  Age: 19 Year
  Sex: Female
  Weight: 44.44 kg

DRUGS (17)
  1. YAZ [Suspect]
     Indication: CONTRACEPTION
     Dosage: UNK
     Dates: start: 20070701, end: 20091201
  2. LEXAPRO [Concomitant]
     Indication: DEPRESSION
     Dosage: UNK
     Dates: start: 200803
  3. LEXAPRO [Concomitant]
     Indication: ANXIETY
  4. METOCLOPRAMIDE [Concomitant]
     Dosage: 5 MG, UNK 14-APR-2008 [120 TABLETS DISPENSED]
     Route: 048
  5. ONDANSETRON HYDROCHLORIDE [Concomitant]
     Dosage: 4 MG, UNK DISPENSED 14-AUG-2008
     Route: 048
  6. FLUCONAZOLE [Concomitant]
     Dosage: 150 MG, UNK DISPENSED 27-AUG-2008
     Route: 048
  7. PANTOPRAZOLE SODIUM [Concomitant]
     Dosage: 40 MG, UNK DISPENSED 01-OCT-2008
     Route: 048
  8. LORAZEPAM [Concomitant]
     Dosage: 1 MG, UNK DISPENSED 01-OCT-2008
     Route: 048
  9. SEASONIQUE [Concomitant]
     Indication: CONTRACEPTION
     Dosage: UNK
     Dates: start: 201003
  10. PROMETHAZIN [Concomitant]
  11. ALPRAZOLAM [Concomitant]
  12. BUPROPION [Concomitant]
  13. CLONAZEPAM [Concomitant]
  14. CARAFATE [Concomitant]
  15. PRILOSEC [Concomitant]
  16. ZYPREXA [Concomitant]
  17. REGLAN [Concomitant]

REACTIONS (17)
  - Gallbladder disorder [None]
  - Nerve injury [None]
  - Impaired gastric emptying [None]
  - Vomiting [None]
  - Abdominal pain [None]
  - Nausea [None]
  - Weight decreased [None]
  - Anhedonia [None]
  - Injury [None]
  - Pain [None]
  - Anxiety [None]
  - Abdominal pain [None]
  - Gastrointestinal pain [None]
  - Activities of daily living impaired [None]
  - Depression [None]
  - Abasia [None]
  - Biliary dyskinesia [None]
